FAERS Safety Report 19288097 (Version 1)
Quarter: 2021Q2

REPORT INFORMATION
  Report Type: Spontaneous
  Country: KR (occurrence: KR)
  Receive Date: 20210522
  Receipt Date: 20210522
  Transmission Date: 20210717
  Serious: Yes (Other)
  Sender: FDA-Public Use
  Company Number: KR-ABBVIE-21K-090-3917043-00

PATIENT

DRUGS (1)
  1. IBRUTINIB [Suspect]
     Active Substance: IBRUTINIB
     Indication: MANTLE CELL LYMPHOMA
     Route: 048

REACTIONS (7)
  - Onycholysis [Unknown]
  - Pruritus [Unknown]
  - Infection [Unknown]
  - Fatigue [Unknown]
  - Diarrhoea [Unknown]
  - Myelosuppression [Unknown]
  - Rash [Unknown]
